FAERS Safety Report 11173380 (Version 1)
Quarter: 2015Q2

REPORT INFORMATION
  Report Type: Spontaneous
  Country: CN (occurrence: CN)
  Receive Date: 20150608
  Receipt Date: 20150608
  Transmission Date: 20150821
  Serious: Yes (Hospitalization)
  Sender: FDA-Public Use
  Company Number: PHHY2015CN066131

PATIENT
  Age: 43 Year
  Sex: Male

DRUGS (1)
  1. THIAMAZOLE [Suspect]
     Active Substance: METHIMAZOLE
     Indication: HYPERTHYROIDISM
     Dosage: 30 MG/DAY
     Route: 065

REACTIONS (9)
  - Pyrexia [Recovered/Resolved]
  - Ulcer [Recovered/Resolved]
  - Cough [Recovered/Resolved]
  - Chills [Recovered/Resolved]
  - Eye swelling [Recovered/Resolved]
  - Agranulocytosis [Recovered/Resolved]
  - Sputum purulent [Recovered/Resolved]
  - Bronchopulmonary aspergillosis [Recovered/Resolved]
  - Aspergillus infection [Recovered/Resolved]
